FAERS Safety Report 8773038 (Version 1)
Quarter: 2012Q4

REPORT INFORMATION
  Report Type: Report from Study
  Country: CA (occurrence: CA)
  Receive Date: 20120907
  Receipt Date: 20120907
  Transmission Date: 20130627
  Serious: Yes (Other)
  Sender: FDA-Public Use
  Company Number: CA-JNJFOC-20120901180

PATIENT
  Age: 47 Year
  Sex: Female
  Weight: 83 kg

DRUGS (4)
  1. REMICADE [Suspect]
     Indication: PSORIASIS
     Route: 042
     Dates: start: 20120517, end: 20120628
  2. REMICADE [Suspect]
     Indication: PSORIATIC ARTHROPATHY
     Route: 042
     Dates: start: 20120517, end: 20120628
  3. PREDNISONE [Concomitant]
     Route: 065
  4. ALL OTHER THERAPEUTIC PRODUCTS [Concomitant]
     Route: 065

REACTIONS (7)
  - Hypertension [Unknown]
  - Sputum discoloured [Unknown]
  - Rhinitis [Unknown]
  - Sinus disorder [Unknown]
  - Cough [Unknown]
  - Headache [Unknown]
  - Malaise [Unknown]
